FAERS Safety Report 17551506 (Version 7)
Quarter: 2020Q2

REPORT INFORMATION
  Report Type: Report from Study
  Country: US (occurrence: US)
  Receive Date: 20200317
  Receipt Date: 20200615
  Transmission Date: 20200713
  Serious: Yes (Other)
  Sender: FDA-Public Use
  Company Number: US-PFIZER INC-2019531387

PATIENT
  Age: 70 Year
  Sex: Female

DRUGS (8)
  1. IBRANCE [Suspect]
     Active Substance: PALBOCICLIB
     Indication: BREAST CANCER FEMALE
     Dosage: 75 MG, CYCLIC (DAILY, 5 DAYS ON/ 2 WEEKS OFF)
     Route: 048
     Dates: start: 20191204
  2. IBRANCE [Suspect]
     Active Substance: PALBOCICLIB
     Dosage: 75 MG, CYCLIC (DAILY, 2 DOSES INSTEAD OF 5)
     Route: 048
  3. IBRANCE [Suspect]
     Active Substance: PALBOCICLIB
     Dosage: 75 MG, CYCLIC (DAILY FOR 5 DAYS ON, 2 WEEKS OFF)
     Route: 048
     Dates: start: 20200412, end: 2020
  4. XELODA [Concomitant]
     Active Substance: CAPECITABINE
     Dosage: UNK
  5. IBRANCE [Suspect]
     Active Substance: PALBOCICLIB
     Dosage: 75 MG, CYCLIC (DAILY, 4 DAYS ON, 2 WEEKS OFF)
     Route: 048
  6. AROMASIN [Concomitant]
     Active Substance: EXEMESTANE
     Dosage: UNK
  7. ARIMIDEX [Concomitant]
     Active Substance: ANASTROZOLE
     Dosage: UNK
  8. FASLODEX [Concomitant]
     Active Substance: FULVESTRANT
     Dosage: UNK

REACTIONS (24)
  - Peripheral swelling [Recovering/Resolving]
  - Protein total decreased [Not Recovered/Not Resolved]
  - Myocardial necrosis marker increased [Unknown]
  - Gastroenteritis viral [Unknown]
  - Nocturia [Unknown]
  - Headache [Unknown]
  - Dry mouth [Unknown]
  - Condition aggravated [Recovering/Resolving]
  - Joint swelling [Recovering/Resolving]
  - Hypertension [Not Recovered/Not Resolved]
  - Tooth loss [Unknown]
  - Rash pruritic [Recovering/Resolving]
  - Nervousness [Unknown]
  - Tooth infection [Unknown]
  - Diarrhoea [Recovering/Resolving]
  - Fatigue [Not Recovered/Not Resolved]
  - Stomatitis [Recovering/Resolving]
  - Neck pain [Recovering/Resolving]
  - Haemoglobin decreased [Unknown]
  - Skin exfoliation [Recovering/Resolving]
  - Condition aggravated [Not Recovered/Not Resolved]
  - White blood cell count decreased [Unknown]
  - Thirst [Unknown]
  - Tooth abscess [Recovering/Resolving]

NARRATIVE: CASE EVENT DATE: 2019
